FAERS Safety Report 21036376 (Version 1)
Quarter: 2022Q3

REPORT INFORMATION
  Report Type: Spontaneous
  Country: US (occurrence: US)
  Receive Date: 20220702
  Receipt Date: 20220702
  Transmission Date: 20221027
  Serious: Yes (Other)
  Sender: FDA-Public Use
  Company Number: US-COSETTEEA-CP2022US000039

PATIENT

DRUGS (2)
  1. BENICAR [Suspect]
     Active Substance: OLMESARTAN MEDOXOMIL
     Indication: Aortic dissection
     Route: 048
     Dates: start: 2022
  2. METOPROLOL [Concomitant]
     Active Substance: METOPROLOL
     Indication: Aortic dissection
     Route: 065

REACTIONS (10)
  - Aphonia [Unknown]
  - Speech disorder [Unknown]
  - Screaming [Unknown]
  - Near death experience [Unknown]
  - Body height decreased [Unknown]
  - Multiple fractures [Unknown]
  - Fall [Unknown]
  - Dyspnoea [Unknown]
  - Asthenia [Unknown]
  - Product use in unapproved indication [Unknown]

NARRATIVE: CASE EVENT DATE: 20220101
